FAERS Safety Report 23822314 (Version 1)
Quarter: 2024Q2

REPORT INFORMATION
  Report Type: Spontaneous
  Country: US (occurrence: None)
  Receive Date: 20240504
  Receipt Date: 20240504
  Transmission Date: 20240716
  Serious: No
  Sender: FDA-Public Use
  Company Number: None

PATIENT
  Age: 65 Year
  Sex: Male

DRUGS (12)
  1. POMALYST [Suspect]
     Active Substance: POMALIDOMIDE
     Indication: Plasma cell myeloma
     Dosage: FREQUENCY : DAILY;?
     Route: 048
     Dates: start: 20230623, end: 20240314
  2. DARATUMUMAB [Concomitant]
     Active Substance: DARATUMUMAB
  3. KYPROLIS [Concomitant]
     Active Substance: CARFILZOMIB
  4. DECADRON [Concomitant]
     Active Substance: DEXAMETHASONE
  5. METFORMIN [Concomitant]
     Active Substance: METFORMIN HYDROCHLORIDE
  6. GLIPIZIDE [Concomitant]
     Active Substance: GLIPIZIDE
  7. GABAPENTIN [Concomitant]
     Active Substance: GABAPENTIN
  8. ACYCLOVIR [Concomitant]
     Active Substance: ACYCLOVIR
  9. TIOTROPIUM [Concomitant]
     Active Substance: TIOTROPIUM
  10. FUROSEMIDE [Concomitant]
     Active Substance: FUROSEMIDE
  11. ALBUTEROL [Concomitant]
     Active Substance: ALBUTEROL
  12. METHIMAZOLE [Concomitant]
     Active Substance: METHIMAZOLE

REACTIONS (5)
  - Plasma cell myeloma [None]
  - Light chain analysis increased [None]
  - Monoclonal immunoglobulin increased [None]
  - Lethargy [None]
  - Asthenia [None]

NARRATIVE: CASE EVENT DATE: 20240420
